FAERS Safety Report 6644444-6 (Version None)
Quarter: 2010Q1

REPORT INFORMATION
  Report Type: 
  Country: None (occurrence: None)
  Receive Date: 20100317
  Receipt Date: 20100303
  Transmission Date: 20100710
  Serious: Yes (Hospitalization, Other)
  Sender: FDA-Public Use
  Company Number: JP-SOLVAY-00310000589

PATIENT
  Age: 19 Year
  Sex: Female

DRUGS (3)
  1. LUVOX [Suspect]
     Indication: DEPRESSION
     Dosage: 50 MILLIGRAM(S), ORAL; 3475 MILLIGRAM(S), ORAL
     Route: 048
     Dates: start: 20090715, end: 20090715
  2. LUVOX [Suspect]
     Indication: DEPRESSION
     Dosage: 50 MILLIGRAM(S), ORAL; 3475 MILLIGRAM(S), ORAL
     Route: 048
     Dates: start: 20090714, end: 20090717
  3. GASMOTIN (MOSAPRIDE CITRATE) [Concomitant]

REACTIONS (4)
  - INTENTIONAL OVERDOSE [None]
  - LONG QT SYNDROME [None]
  - SEROTONIN SYNDROME [None]
  - THERAPEUTIC AGENT TOXICITY [None]
